FAERS Safety Report 16535714 (Version 2)
Quarter: 2020Q1

REPORT INFORMATION
  Report Type: Spontaneous
  Country: US (occurrence: US)
  Receive Date: 20190705
  Receipt Date: 20200127
  Transmission Date: 20200409
  Serious: Yes (Other)
  Sender: FDA-Public Use
  Company Number: US-GW PHARMA-201905USGW1549

PATIENT

DRUGS (4)
  1. LOVENOX [Interacting]
     Active Substance: ENOXAPARIN SODIUM
     Indication: PULMONARY EMBOLISM
     Dosage: 40 MILLIGRAM, BID
     Route: 058
     Dates: start: 2005, end: 20190311
  2. EPIDIOLEX [Suspect]
     Active Substance: CANNABIDIOL
     Indication: SEIZURE
     Dosage: UNK
     Route: 048
     Dates: start: 20190207, end: 2019
  3. EPIDIOLEX [Interacting]
     Active Substance: CANNABIDIOL
     Dosage: 20.2 MG/KG, 500 MILLIGRAM, BID
     Route: 048
     Dates: start: 2019
  4. LOVENOX [Interacting]
     Active Substance: ENOXAPARIN SODIUM
     Dosage: 30 MILLIGRAM, Q12H
     Route: 058
     Dates: start: 20190312

REACTIONS (4)
  - Overdose [Unknown]
  - Anticoagulation drug level above therapeutic [Recovered/Resolved]
  - Product physical consistency issue [Unknown]
  - Drug interaction [Unknown]

NARRATIVE: CASE EVENT DATE: 2019
